FAERS Safety Report 5121269-4 (Version None)
Quarter: 2006Q4

REPORT INFORMATION
  Report Type: 
  Country: None (occurrence: None)
  Receive Date: 20061005
  Receipt Date: 20060601
  Transmission Date: 20070319
  Serious: Yes (Death, Other)
  Sender: FDA-Public Use
  Company Number: AT-ABBOTT-06P-009-0334944-00

PATIENT
  Age: 55 Year
  Sex: Male
  Weight: 136 kg

DRUGS (19)
  1. ZEMPLAR [Suspect]
     Indication: HYPERPARATHYROIDISM SECONDARY
     Route: 042
     Dates: start: 20051116, end: 20060215
  2. ZEMPLAR [Suspect]
     Route: 042
     Dates: start: 20060325, end: 20060512
  3. ALUMINIUM HYDROXIDE GEL [Concomitant]
     Indication: HYPERPHOSPHATAEMIA
     Route: 048
     Dates: start: 20040708, end: 20051217
  4. ALUMINIUM HYDROXIDE GEL [Concomitant]
     Route: 048
     Dates: start: 20051218
  5. SEVELAMER HYDROCHLORIDE [Concomitant]
     Indication: HYPERPHOSPHATAEMIA
     Route: 048
     Dates: start: 20050209, end: 20060502
  6. SEVELAMER HYDROCHLORIDE [Concomitant]
     Route: 065
     Dates: start: 20060503, end: 20060512
  7. CALCITRIOL [Concomitant]
     Indication: HYPERPARATHYROIDISM SECONDARY
     Route: 042
     Dates: start: 20030919, end: 20040206
  8. CALCITRIOL [Concomitant]
     Route: 042
     Dates: start: 20040206, end: 20040927
  9. CALCITRIOL [Concomitant]
     Route: 042
     Dates: start: 20040927, end: 20050216
  10. MIMPARA [Concomitant]
     Indication: HYPERPARATHYROIDISM SECONDARY
     Dates: start: 20050826, end: 20051125
  11. MIMPARA [Concomitant]
     Dates: start: 20051126
  12. FERRIC SODIUM GLUCONATE COMPLEX [Concomitant]
     Indication: IRON DEFICIENCY
     Route: 042
     Dates: start: 20051001
  13. EPOETIN ALFA [Concomitant]
     Indication: ANAEMIA
     Route: 042
     Dates: start: 20040101
  14. TRAZODONE HCL [Concomitant]
     Indication: DEPRESSION
     Route: 048
     Dates: start: 20040101
  15. PANTOPRAZOLE SODIUM [Concomitant]
     Indication: PROPHYLAXIS AGAINST GASTROINTESTINAL ULCER
     Route: 048
     Dates: start: 20040101
  16. CLOPIDOGREL BISULFATE [Concomitant]
     Indication: PROPHYLAXIS AGAINST GASTROINTESTINAL ULCER
     Route: 048
     Dates: start: 20040101
  17. BITOLTEROL MESILATE [Concomitant]
     Indication: DEPRESSION
     Route: 048
     Dates: start: 20040101
  18. INSULIN [Concomitant]
     Indication: DIABETES MELLITUS
     Route: 058
  19. ZOLDEM [Concomitant]
     Indication: DEPRESSION
     Route: 048
     Dates: start: 20051201

REACTIONS (2)
  - CALCINOSIS [None]
  - HYPERPHOSPHATAEMIA [None]
